FAERS Safety Report 10943158 (Version 2)
Quarter: 2015Q2

REPORT INFORMATION
  Report Type: Spontaneous
  Country: US (occurrence: US)
  Receive Date: 20150322
  Receipt Date: 20150524
  Transmission Date: 20150821
  Serious: No
  Sender: FDA-Public Use
  Company Number: US-JNJFOC-20131200672

PATIENT
  Age: 67 Year
  Sex: Female
  Weight: 87.54 kg

DRUGS (9)
  1. INVOKANA [Suspect]
     Active Substance: CANAGLIFLOZIN
     Indication: TYPE 2 DIABETES MELLITUS
     Route: 048
     Dates: start: 201311
  2. GABAPENTIN. [Concomitant]
     Active Substance: GABAPENTIN
     Indication: LYMPHOEDEMA
  3. OMEPRAZOLE. [Concomitant]
     Active Substance: OMEPRAZOLE
     Indication: DYSPEPSIA
  4. GABAPENTIN. [Concomitant]
     Active Substance: GABAPENTIN
     Indication: NEUROPATHY PERIPHERAL
  5. LANTUS [Concomitant]
     Active Substance: INSULIN GLARGINE
  6. GABAPENTIN. [Concomitant]
     Active Substance: GABAPENTIN
     Indication: PAIN
  7. LASIX [Concomitant]
     Active Substance: FUROSEMIDE
  8. SYNTHROID [Concomitant]
     Active Substance: LEVOTHYROXINE SODIUM
     Indication: THYROID DISORDER
  9. NOVOLOG [Concomitant]
     Active Substance: INSULIN ASPART
     Dosage: SLIDING SCALE

REACTIONS (2)
  - Drug dose omission [Not Recovered/Not Resolved]
  - Blood glucose increased [Not Recovered/Not Resolved]

NARRATIVE: CASE EVENT DATE: 20131201
